FAERS Safety Report 11173444 (Version 1)
Quarter: 2015Q2

REPORT INFORMATION
  Report Type: Spontaneous
  Country: US (occurrence: US)
  Receive Date: 20150609
  Receipt Date: 20150609
  Transmission Date: 20150821
  Serious: Yes (Other)
  Sender: FDA-Public Use
  Company Number: US-AMGEN-USASP2015054631

PATIENT
  Age: 79 Year
  Sex: Male
  Weight: 69.84 kg

DRUGS (3)
  1. TORISEL [Concomitant]
     Active Substance: TEMSIROLIMUS
     Dosage: UNK
  2. XGEVA [Suspect]
     Active Substance: DENOSUMAB
     Indication: PRODUCT USED FOR UNKNOWN INDICATION
     Dosage: UNK
     Route: 065
  3. SUTENT [Concomitant]
     Active Substance: SUNITINIB MALATE
     Dosage: 50 MG, 7 DAYS ON AND 7 DAYS OFF

REACTIONS (8)
  - Metastases to soft tissue [Unknown]
  - Renal cell carcinoma [Unknown]
  - Chronic kidney disease [Unknown]
  - Back pain [Unknown]
  - Metastases to nasal sinuses [Unknown]
  - Nephrectomy [Unknown]
  - Nausea [Unknown]
  - Metastases to bone [Unknown]

NARRATIVE: CASE EVENT DATE: 2011
